FAERS Safety Report 15942252 (Version 1)
Quarter: 2019Q1

REPORT INFORMATION
  Report Type: Report from Study
  Country: CA (occurrence: CA)
  Receive Date: 20190209
  Receipt Date: 20190209
  Transmission Date: 20190417
  Serious: Yes (Other)
  Sender: FDA-Public Use
  Company Number: CA-TEVA-2019-CA-1007881

PATIENT
  Age: 50 Year
  Sex: Female

DRUGS (14)
  1. HUMIRA [Concomitant]
     Active Substance: ADALIMUMAB
     Indication: PRODUCT USED FOR UNKNOWN INDICATION
     Route: 065
  2. COSENTYX [Suspect]
     Active Substance: SECUKINUMAB
     Route: 058
  3. OTEZLA [Concomitant]
     Active Substance: APREMILAST
     Indication: PRODUCT USED FOR UNKNOWN INDICATION
     Route: 065
  4. SIMPONI [Concomitant]
     Active Substance: GOLIMUMAB
     Indication: PRODUCT USED FOR UNKNOWN INDICATION
     Route: 065
  5. COSENTYX [Suspect]
     Active Substance: SECUKINUMAB
     Indication: PSORIATIC ARTHROPATHY
     Route: 058
  6. METHOTREXATE. [Suspect]
     Active Substance: METHOTREXATE
     Indication: PRODUCT USED FOR UNKNOWN INDICATION
     Route: 065
  7. CIMZIA [Concomitant]
     Active Substance: CERTOLIZUMAB PEGOL
     Indication: PRODUCT USED FOR UNKNOWN INDICATION
     Route: 065
  8. COSENTYX [Suspect]
     Active Substance: SECUKINUMAB
     Route: 058
  9. REMICADE [Concomitant]
     Active Substance: INFLIXIMAB
     Indication: PRODUCT USED FOR UNKNOWN INDICATION
     Route: 065
  10. CICLOSPORIN [Suspect]
     Active Substance: CYCLOSPORINE
     Indication: PRODUCT USED FOR UNKNOWN INDICATION
     Route: 065
  11. COSENTYX [Suspect]
     Active Substance: SECUKINUMAB
     Route: 058
  12. COSENTYX [Suspect]
     Active Substance: SECUKINUMAB
     Route: 058
  13. COSENTYX [Suspect]
     Active Substance: SECUKINUMAB
     Route: 058
  14. PREDNISONE. [Concomitant]
     Active Substance: PREDNISONE
     Indication: PRODUCT USED FOR UNKNOWN INDICATION
     Route: 065

REACTIONS (19)
  - Headache [Not Recovered/Not Resolved]
  - Movement disorder [Not Recovered/Not Resolved]
  - Pain [Not Recovered/Not Resolved]
  - Hypoaesthesia [Not Recovered/Not Resolved]
  - Drug ineffective [Not Recovered/Not Resolved]
  - Swelling [Not Recovered/Not Resolved]
  - Arthritis [Not Recovered/Not Resolved]
  - Peripheral swelling [Not Recovered/Not Resolved]
  - C-reactive protein increased [Not Recovered/Not Resolved]
  - Musculoskeletal pain [Not Recovered/Not Resolved]
  - Pain in extremity [Not Recovered/Not Resolved]
  - Acne [Not Recovered/Not Resolved]
  - Arthralgia [Not Recovered/Not Resolved]
  - Fall [Not Recovered/Not Resolved]
  - Joint swelling [Not Recovered/Not Resolved]
  - Neck pain [Not Recovered/Not Resolved]
  - Overdose [Not Recovered/Not Resolved]
  - Gait inability [Not Recovered/Not Resolved]
  - Spinal pain [Not Recovered/Not Resolved]
